FAERS Safety Report 13301474 (Version 1)
Quarter: 2017Q1

REPORT INFORMATION
  Report Type: Spontaneous
  Country: US (occurrence: US)
  Receive Date: 20170306
  Receipt Date: 20170306
  Transmission Date: 20170428
  Serious: No
  Sender: FDA-Public Use
  Company Number: None

PATIENT
  Age: 57 Year
  Sex: Female

DRUGS (1)
  1. IMATINIB MES TAB [Suspect]
     Active Substance: IMATINIB MESYLATE

REACTIONS (6)
  - Decreased appetite [None]
  - Muscle spasms [None]
  - Weight decreased [None]
  - Vomiting [None]
  - Nausea [None]
  - Abdominal pain [None]

NARRATIVE: CASE EVENT DATE: 20170306
